FAERS Safety Report 8886877 (Version 2)
Quarter: 2012Q4

REPORT INFORMATION
  Report Type: 
  Country: US (occurrence: US)
  Receive Date: 20121105
  Receipt Date: 20121214
  Transmission Date: 20130627
  Serious: Yes (Hospitalization, Other)
  Sender: FDA-Public Use
  Company Number: US-PURDUE-USA-2012-0095270

PATIENT
  Age: 63 Year
  Sex: Male
  Weight: 72.2 kg

DRUGS (9)
  1. DILAUDID INJECTION [Suspect]
     Indication: BREAKTHROUGH PAIN
  2. OXYCODONE HYDROCHLORIDE (SIMILAR TO NDA 22-272) [Suspect]
     Indication: PRODUCT USED FOR UNKNOWN INDICATION
     Dosage: UNK
     Dates: start: 201208
  3. ONARTUZUMAB [Suspect]
     Indication: NON-SMALL CELL LUNG CANCER
     Dosage: every 3 week
     Route: 042
     Dates: start: 20120710
  4. CARBOPLATIN [Suspect]
     Indication: NON-SMALL CELL LUNG CANCER
     Dosage: 570 mg for every 3 week
     Route: 042
     Dates: start: 20120710
  5. PACLITAXEL [Suspect]
     Indication: NON-SMALL CELL LUNG CANCER
     Dosage: 370 mg for every 3 week
     Route: 042
     Dates: start: 20120710
  6. FENTANYL CITRATE [Suspect]
     Indication: PAIN
     Dosage: 400 mcg, patch
  7. BENADRYL                           /00000402/ [Concomitant]
     Indication: PRODUCT USED FOR UNKNOWN INDICATION
  8. DEXAMETHASONE [Concomitant]
     Indication: PRODUCT USED FOR UNKNOWN INDICATION
  9. PEPCID                             /00706001/ [Concomitant]
     Indication: PRODUCT USED FOR UNKNOWN INDICATION

REACTIONS (4)
  - Fractured sacrum [Unknown]
  - Arthralgia [Recovered/Resolved]
  - Back pain [Unknown]
  - Hallucination [Recovered/Resolved]
